FAERS Safety Report 10777555 (Version 1)
Quarter: 2015Q1

REPORT INFORMATION
  Report Type: Spontaneous
  Country: GB (occurrence: GB)
  Receive Date: 20150209
  Receipt Date: 20150209
  Transmission Date: 20150721
  Serious: Yes (Congenital Anomaly, Other)
  Sender: FDA-Public Use
  Company Number: GB-ELI_LILLY_AND_COMPANY-GB201501008992

PATIENT

DRUGS (2)
  1. PROZAC [Suspect]
     Active Substance: FLUOXETINE HYDROCHLORIDE
     Indication: DEPRESSION
     Dosage: UNK, UNKNOWN
     Route: 064
  2. PROZAC [Suspect]
     Active Substance: FLUOXETINE HYDROCHLORIDE
     Indication: FLASHBACK

REACTIONS (7)
  - Foetal exposure during pregnancy [Recovered/Resolved]
  - Cleft lip [Unknown]
  - Spina bifida [Unknown]
  - Seizure [Unknown]
  - Epilepsy [Unknown]
  - Autism [Unknown]
  - Pituitary tumour [Unknown]
